FAERS Safety Report 16545047 (Version 2)
Quarter: 2019Q4

REPORT INFORMATION
  Report Type: Spontaneous
  Country: CA (occurrence: CA)
  Receive Date: 20190709
  Receipt Date: 20191015
  Transmission Date: 20200122
  Serious: Yes (Other)
  Sender: FDA-Public Use
  Company Number: CA-TEVA-2019-CA-1072997

PATIENT
  Age: 56 Year
  Sex: Male
  Weight: 93 kg

DRUGS (7)
  1. CISPLATIN INJECTION [Concomitant]
     Active Substance: CISPLATIN
  2. DEXAMETHASONE. [Concomitant]
     Active Substance: DEXAMETHASONE
  3. PROCHLORPERAZINE. [Concomitant]
     Active Substance: PROCHLORPERAZINE
  4. NACL [Concomitant]
     Active Substance: SODIUM CHLORIDE
  5. ONDANSETRON [Suspect]
     Active Substance: ONDANSETRON
     Indication: PROPHYLAXIS OF NAUSEA AND VOMITING
     Route: 048
  6. EMEND [Concomitant]
     Active Substance: APREPITANT
  7. LORAZEPAM. [Concomitant]
     Active Substance: LORAZEPAM

REACTIONS (1)
  - Erection increased [Recovered/Resolved]
